FAERS Safety Report 23584924 (Version 1)
Quarter: 2024Q1

REPORT INFORMATION
  Report Type: Spontaneous
  Country: NL (occurrence: NL)
  Receive Date: 20240301
  Receipt Date: 20240301
  Transmission Date: 20240409
  Serious: Yes (Other)
  Sender: FDA-Public Use
  Company Number: NL-Vifor (International) Inc.-VIT-2024-01803

PATIENT

DRUGS (2)
  1. VELTASSA [Suspect]
     Active Substance: PATIROMER
     Indication: Product used for unknown indication
     Dates: start: 2021
  2. SEVELAMER [Concomitant]
     Active Substance: SEVELAMER

REACTIONS (1)
  - Porphyria [Unknown]

NARRATIVE: CASE EVENT DATE: 20211001
